FAERS Safety Report 7953149-0 (Version None)
Quarter: 2011Q4

REPORT INFORMATION
  Report Type: 
  Country: None (occurrence: None)
  Receive Date: 20111201
  Receipt Date: 20111029
  Transmission Date: 20120403
  Serious: Yes (Other)
  Sender: FDA-Public Use
  Company Number: US-ROCHE-1017345

PATIENT
  Age: 98 Year
  Sex: Female

DRUGS (1)
  1. RANIBIZUMAB [Suspect]
     Indication: RETINAL VEIN OCCLUSION
     Route: 050
     Dates: start: 20111001

REACTIONS (4)
  - PNEUMONIA [None]
  - HALLUCINATION [None]
  - CONFUSIONAL STATE [None]
  - ATRIAL FIBRILLATION [None]
